FAERS Safety Report 20858127 (Version 1)
Quarter: 2022Q2

REPORT INFORMATION
  Report Type: Spontaneous
  Country: CZ (occurrence: CZ)
  Receive Date: 20220521
  Receipt Date: 20220521
  Transmission Date: 20220720
  Serious: Yes (Other)
  Sender: FDA-Public Use
  Company Number: CZ-Accord-263698

PATIENT
  Age: 71 Year
  Sex: Male

DRUGS (4)
  1. FLUOROURACIL [Suspect]
     Active Substance: FLUOROURACIL
     Indication: Colorectal cancer
     Dosage: CUMULATIVE DOSE: 6 CYCLICAL
     Dates: start: 201802
  2. OXALIPLATIN [Suspect]
     Active Substance: OXALIPLATIN
     Indication: Colorectal cancer
     Dosage: CUMULATIVE DOSE: 6 CYCLICAL
     Dates: start: 201802
  3. LEUCOVORIN [Suspect]
     Active Substance: LEUCOVORIN
     Indication: Colorectal cancer
     Dosage: CUMULATIVE DOSE: 6 CYCLICAL
     Dates: start: 201802
  4. CETUXIMAB [Suspect]
     Active Substance: CETUXIMAB
     Indication: Colorectal cancer
     Dosage: CUMULATIVE DOSE: 6 CYCLICAL
     Dates: start: 201802, end: 201809

REACTIONS (2)
  - Neuropathy peripheral [Unknown]
  - Drug intolerance [Unknown]
